FAERS Safety Report 20779403 (Version 1)
Quarter: 2022Q2

REPORT INFORMATION
  Report Type: Spontaneous
  Country: CN (occurrence: CN)
  Receive Date: 20220503
  Receipt Date: 20220503
  Transmission Date: 20220721
  Serious: Yes (Hospitalization)
  Sender: FDA-Public Use
  Company Number: CN-009507513-2205CHN000660

PATIENT
  Age: 74 Year
  Sex: Female

DRUGS (1)
  1. JANUVIA [Suspect]
     Active Substance: SITAGLIPTIN PHOSPHATE
     Indication: Diabetes mellitus
     Dosage: 100 MG, QD, ORAL
     Route: 048
     Dates: start: 20170101, end: 20220426

REACTIONS (4)
  - Diarrhoea [Recovering/Resolving]
  - Pyrexia [Unknown]
  - White blood cell disorder [Recovering/Resolving]
  - Mental disorder [Recovered/Resolved]

NARRATIVE: CASE EVENT DATE: 20220414
